FAERS Safety Report 9251655 (Version 1)
Quarter: 2013Q1

REPORT INFORMATION
  Report Type: Spontaneous
  Country: US (occurrence: None)
  Receive Date: 20130305
  Receipt Date: 20130305
  Transmission Date: 20140127
  Serious: Yes (Other)
  Sender: FDA-Public Use
  Company Number: 163-21880-12082227

PATIENT
  Age: 74 Year
  Sex: Male

DRUGS (5)
  1. REVLIMID [Suspect]
     Indication: PLASMA CELL MYELOMA
     Dosage: 11/2011 - UNKNOWN, CAPSULE, 10 MG, 21 IN 21 D, PO
  2. NORVASC (AMLODIPINE BESILATE) [Concomitant]
  3. LORTAB (VICODIN) [Concomitant]
  4. MORPHINE SULPHATE (MORPHINE SULFATE) [Concomitant]
  5. CYCLOBENZAPRINE (CYCLOBENZAPRINE) [Concomitant]

REACTIONS (3)
  - Dyspnoea exertional [None]
  - Dysphonia [None]
  - Plasma cell myeloma [None]
